FAERS Safety Report 15754528 (Version 3)
Quarter: 2019Q2

REPORT INFORMATION
  Report Type: Spontaneous
  Country: CH (occurrence: CH)
  Receive Date: 20181224
  Receipt Date: 20190403
  Transmission Date: 20190711
  Serious: Yes (Other)
  Sender: FDA-Public Use
  Company Number: CH-AMGEN-CHESP2018181414

PATIENT
  Age: 65 Year
  Sex: Female
  Weight: 36.8 kg

DRUGS (7)
  1. PROLIA [Suspect]
     Active Substance: DENOSUMAB
     Indication: OSTEOPOROTIC FRACTURE
     Dosage: 60 MILLIGRAM, Q6MO
     Route: 058
     Dates: start: 20140624, end: 20180910
  2. ROSUVASTATIN. [Concomitant]
     Active Substance: ROSUVASTATIN
     Indication: HYPERCHOLESTEROLAEMIA
     Dosage: 10 MG, QD
  3. ASPIRIN CARDIO [Concomitant]
     Active Substance: ASPIRIN
     Indication: PROPHYLAXIS
     Dosage: 100 UNK, QD
  4. PROLIA [Suspect]
     Active Substance: DENOSUMAB
     Indication: OSTEOPOROSIS POSTMENOPAUSAL
  5. MEFENACID [Concomitant]
     Active Substance: MEFENAMIC ACID
     Indication: PAIN
     Dosage: 500 UNK, R
  6. IBANDRONATE [Concomitant]
     Active Substance: IBANDRONATE SODIUM
     Dosage: UNK, Q3MO
     Dates: start: 2010, end: 2014
  7. PREDNISONE. [Concomitant]
     Active Substance: PREDNISONE
     Dosage: UNK
     Dates: start: 20181012, end: 20181218

REACTIONS (2)
  - Osteonecrosis of jaw [Not Recovered/Not Resolved]
  - Fracture [Unknown]

NARRATIVE: CASE EVENT DATE: 20181119
